FAERS Safety Report 10141643 (Version 1)
Quarter: 2014Q2

REPORT INFORMATION
  Report Type: Spontaneous
  Country: US (occurrence: US)
  Receive Date: 20140429
  Receipt Date: 20140429
  Transmission Date: 20141212
  Serious: No
  Sender: FDA-Public Use
  Company Number: US-PFIZER INC-2014116087

PATIENT
  Age: 69 Year
  Sex: Female
  Weight: 88.44 kg

DRUGS (5)
  1. DETROL LA [Suspect]
     Dosage: UNK
  2. PRAVASTATIN [Concomitant]
     Dosage: UNK
  3. FAMOTIDINE [Concomitant]
     Dosage: UNK
  4. PANTOPRAZOLE [Concomitant]
     Dosage: UNK
  5. PREMARIN [Concomitant]
     Dosage: UNK, WEEKLY

REACTIONS (1)
  - Drug ineffective [Unknown]
